FAERS Safety Report 5248057-2 (Version None)
Quarter: 2007Q1

REPORT INFORMATION
  Report Type: 
  Country: None (occurrence: None)
  Receive Date: 20070222
  Receipt Date: 20070212
  Transmission Date: 20070707
  Serious: Yes (Other)
  Sender: FDA-Public Use
  Company Number: CAP07000066

PATIENT
  Age: 76 Year
  Sex: Female

DRUGS (4)
  1. ACTONEL [Suspect]
     Dosage: ORAL
     Route: 048
     Dates: start: 20050101, end: 20061201
  2. ETIDRONATE DISODIUM [Suspect]
     Dosage: 1 TABLET, 1/DAY, ORAL
     Route: 048
     Dates: start: 19970101, end: 20050101
  3. COZAAR [Concomitant]
  4. DIABETA [Concomitant]

REACTIONS (1)
  - NON-HODGKIN'S LYMPHOMA STAGE III [None]
